FAERS Safety Report 8726872 (Version 2)
Quarter: 2015Q2

REPORT INFORMATION
  Report Type: Report from Study
  Country: US (occurrence: US)
  Receive Date: 20120816
  Receipt Date: 20150625
  Transmission Date: 20150821
  Serious: Yes (Other)
  Sender: FDA-Public Use
  Company Number: US-ROCHE-1100483

PATIENT
  Age: 46 Year
  Sex: Male

DRUGS (13)
  1. HUMULIN NOS [Concomitant]
     Active Substance: INSULIN HUMAN
     Route: 065
  2. MAGNESIUM SULPHATE [Concomitant]
     Active Substance: MAGNESIUM SULFATE
  3. PEPCID [Concomitant]
     Active Substance: FAMOTIDINE
     Route: 042
  4. COMPAZINE [Concomitant]
     Active Substance: PROCHLORPERAZINE MALEATE
     Route: 042
  5. HUMULIN NOS [Concomitant]
     Active Substance: INSULIN HUMAN
     Route: 065
  6. HEPARIN [Concomitant]
     Active Substance: HEPARIN SODIUM
     Route: 042
  7. ACTIVASE [Suspect]
     Active Substance: ALTEPLASE
     Indication: ACUTE MYOCARDIAL INFARCTION
     Route: 042
  8. ACTIVASE [Suspect]
     Active Substance: ALTEPLASE
     Route: 042
  9. THIAMINE [Concomitant]
     Active Substance: THIAMINE
     Route: 065
  10. MORPHINE SULPHATE DRIP [Concomitant]
     Route: 042
  11. HEPARIN [Concomitant]
     Active Substance: HEPARIN SODIUM
     Route: 042
  12. POTASSIUM CHLORIDE. [Concomitant]
     Active Substance: POTASSIUM CHLORIDE
     Route: 065
  13. LIDOCAINE. [Concomitant]
     Active Substance: LIDOCAINE
     Route: 042

REACTIONS (2)
  - Blood creatine phosphokinase increased [Unknown]
  - Arrhythmia [Unknown]
